FAERS Safety Report 26142938 (Version 1)
Quarter: 2025Q4

REPORT INFORMATION
  Report Type: Spontaneous
  Country: CN (occurrence: CN)
  Receive Date: 20251211
  Receipt Date: 20251211
  Transmission Date: 20260118
  Serious: Yes (Other)
  Sender: Kenvue
  Company Number: CN-KENVUE-20251202482

PATIENT
  Age: 92 Year
  Weight: 65 kg

DRUGS (3)
  1. LOPERAMIDE HYDROCHLORIDE [Suspect]
     Active Substance: LOPERAMIDE HYDROCHLORIDE
     Indication: Diarrhoea
     Dosage: 2 MILLIGRAM, ONCE A DAY
  2. BERBERINE [Concomitant]
     Active Substance: BERBERINE
     Indication: Diarrhoea
     Dosage: UNK
     Route: 065
  3. Bifico [Concomitant]
     Indication: Diarrhoea
     Dosage: UNK
     Route: 065

REACTIONS (2)
  - Intestinal obstruction [Recovering/Resolving]
  - Incorrect dose administered [Unknown]
